FAERS Safety Report 4876935-2 (Version None)
Quarter: 2006Q1

REPORT INFORMATION
  Report Type: 
  Country: None (occurrence: None)
  Receive Date: 20060110
  Receipt Date: 20051212
  Transmission Date: 20060701
  Serious: Yes (Other)
  Sender: FDA-Public Use
  Company Number: US-ROCHE-428500

PATIENT
  Age: 54 Year
  Sex: Male

DRUGS (2)
  1. PEGASYS [Suspect]
     Indication: HEPATITIS C VIRUS
     Route: 065
     Dates: start: 20051202
  2. COPEGUS [Suspect]
     Indication: HEPATITIS C VIRUS
     Route: 048
     Dates: start: 20051202

REACTIONS (9)
  - CHILLS [None]
  - FATIGUE [None]
  - FEELING HOT [None]
  - HAEMOPTYSIS [None]
  - HEADACHE [None]
  - INJECTION SITE DISCOLOURATION [None]
  - IRRITABILITY [None]
  - PAIN [None]
  - RHINORRHOEA [None]
